FAERS Safety Report 8517205-0 (Version None)
Quarter: 2012Q3

REPORT INFORMATION
  Report Type: 
  Country: None (occurrence: None)
  Receive Date: 20120718
  Receipt Date: 20120710
  Transmission Date: 20120928
  Serious: Yes (Hospitalization)
  Sender: FDA-Public Use
  Company Number: NL-PFIZER INC-2012165658

PATIENT
  Age: 55 Year
  Sex: Female
  Weight: 67 kg

DRUGS (1)
  1. SULFASALAZINE [Suspect]
     Dosage: 500 MG, 2X/DAY
     Dates: start: 20120622, end: 20120706

REACTIONS (3)
  - RASH GENERALISED [None]
  - MALAISE [None]
  - HEADACHE [None]
